FAERS Safety Report 4305509-7 (Version None)
Quarter: 2004Q1

REPORT INFORMATION
  Report Type: 
  Country: None (occurrence: None)
  Receive Date: 20040226
  Receipt Date: 20031107
  Transmission Date: 20041129
  Serious: Yes (Hospitalization)
  Sender: FDA-Public Use
  Company Number: US-BRISTOL-MYERS SQUIBB COMPANY-12432191

PATIENT
  Age: 15 Year
  Sex: Male

DRUGS (3)
  1. ABILIFY [Suspect]
     Indication: ANXIETY
     Route: 048
     Dates: start: 20031106
  2. ABILIFY [Suspect]
     Indication: ANGER
     Route: 048
     Dates: start: 20031106
  3. EFFEXOR [Concomitant]

REACTIONS (1)
  - MUSCLE TIGHTNESS [None]
